FAERS Safety Report 6703884-7 (Version None)
Quarter: 2010Q2

REPORT INFORMATION
  Report Type: 
  Country: None (occurrence: None)
  Receive Date: 20100430
  Receipt Date: 20100427
  Transmission Date: 20101027
  Serious: Yes (Hospitalization)
  Sender: FDA-Public Use
  Company Number: FR-SANOFI-AVENTIS-2010SA024175

PATIENT
  Age: 53 Year
  Sex: Female

DRUGS (6)
  1. RIFADIN [Suspect]
     Indication: TUBERCULOSIS
     Route: 048
     Dates: start: 20091208
  2. RIMIFON [Suspect]
     Indication: TUBERCULOSIS
     Route: 048
     Dates: start: 20091208
  3. PIRILENE [Concomitant]
     Indication: TUBERCULOSIS
     Route: 048
     Dates: end: 20100401
  4. ETHAMBUTOL HYDROCHLORIDE [Concomitant]
     Indication: TUBERCULOSIS
     Route: 065
     Dates: end: 20100401
  5. EMTRICITABINE/TENOFOVIR DISOPROXIL FUMARATE [Concomitant]
     Indication: HIV INFECTION
     Route: 048
     Dates: start: 20080801
  6. ANTIVIRALS FOR SYSTEMIC USE [Concomitant]
     Indication: HIV INFECTION
     Route: 048
     Dates: start: 20080801

REACTIONS (1)
  - ARTHRALGIA [None]
